FAERS Safety Report 15156487 (Version 2)
Quarter: 2019Q4

REPORT INFORMATION
  Report Type: Spontaneous
  Country: CA (occurrence: CA)
  Receive Date: 20180717
  Receipt Date: 20191022
  Transmission Date: 20200122
  Serious: Yes (Hospitalization)
  Sender: FDA-Public Use
  Company Number: CA-TEVA-2018-CA-924447

PATIENT
  Age: 79 Year
  Sex: Male
  Weight: 65 kg

DRUGS (16)
  1. ALFACALCIDOL [Concomitant]
     Active Substance: ALFACALCIDOL
  2. KAYEXALATE [Concomitant]
     Active Substance: SODIUM POLYSTYRENE SULFONATE
  3. PANTOPRAZOLE [Concomitant]
     Active Substance: PANTOPRAZOLE
  4. SALBUTAMOL [Concomitant]
     Active Substance: ALBUTEROL
  5. AMLODIPINE [Concomitant]
     Active Substance: AMLODIPINE BESYLATE
  6. EPREX STERILE SOLUTION [Concomitant]
     Route: 042
  7. MEGESTROL [Concomitant]
     Active Substance: MEGESTROL
  8. BISOPROLOL [Concomitant]
     Active Substance: BISOPROLOL
  9. FLUTICASONE. [Concomitant]
     Active Substance: FLUTICASONE
  10. AZITHROMYCIN ANHYDROUS. [Suspect]
     Active Substance: AZITHROMYCIN ANHYDROUS
     Indication: COUGH
     Dosage: FREQUENCY: ONCE
     Route: 048
  11. VIT D 1000 [Concomitant]
  12. DOCUSATE [Concomitant]
     Active Substance: DOCUSATE
  13. ONE ALPHA [Concomitant]
     Active Substance: ALFACALCIDOL
  14. CEFAZOLIN [Suspect]
     Active Substance: CEFAZOLIN
     Indication: PERITONITIS
     Route: 033
  15. ASA [Concomitant]
     Active Substance: ASPIRIN
  16. SEVELAMER [Concomitant]
     Active Substance: SEVELAMER

REACTIONS (7)
  - Lip swelling [Recovering/Resolving]
  - Arthralgia [Recovering/Resolving]
  - Pruritus [Recovering/Resolving]
  - Laryngeal discomfort [Recovering/Resolving]
  - Product dose omission [Recovering/Resolving]
  - Blister [Recovering/Resolving]
  - Oral disorder [Recovering/Resolving]
